FAERS Safety Report 5412000-3 (Version None)
Quarter: 2007Q3

REPORT INFORMATION
  Report Type: 
  Country: None (occurrence: None)
  Receive Date: 20070810
  Receipt Date: 20070810
  Transmission Date: 20080115
  Serious: Yes (Other)
  Sender: FDA-Public Use
  Company Number: None

PATIENT
  Sex: Female

DRUGS (1)
  1. GADOLINIUM   UNKNOWN  UNKNOWN [Suspect]
     Dosage: IV
     Route: 042
     Dates: start: 20041101, end: 20060601

REACTIONS (1)
  - NEPHROGENIC SYSTEMIC FIBROSIS [None]
